FAERS Safety Report 11941654 (Version 5)
Quarter: 2019Q2

REPORT INFORMATION
  Report Type: Spontaneous
  Country: FR (occurrence: FR)
  Receive Date: 20160123
  Receipt Date: 20190518
  Transmission Date: 20190711
  Serious: Yes (Life-Threatening, Hospitalization, Other)
  Sender: FDA-Public Use
  Company Number: FR-AUROBINDO-AUR-APL-2016-00283

PATIENT

DRUGS (21)
  1. SOLIRIS [Interacting]
     Active Substance: ECULIZUMAB
     Dosage: UNK
     Route: 042
     Dates: start: 20151020, end: 20151020
  2. PANTOPRAZOLE SODIUM. [Suspect]
     Active Substance: PANTOPRAZOLE SODIUM
     Dosage: 120 UNK
     Route: 065
     Dates: start: 201509
  3. SOLIRIS [Interacting]
     Active Substance: ECULIZUMAB
     Indication: HAEMOLYTIC URAEMIC SYNDROME
     Dosage: 900 1 WEEK UNK
     Route: 042
     Dates: start: 20151015, end: 20151106
  4. SOLIRIS [Interacting]
     Active Substance: ECULIZUMAB
     Dosage: UNK
     Route: 042
     Dates: start: 20151022, end: 20151022
  5. ESIDREX [Suspect]
     Active Substance: HYDROCHLOROTHIAZIDE
     Indication: PRODUCT USED FOR UNKNOWN INDICATION
     Dosage: UNK, BID
     Route: 048
     Dates: start: 20151016, end: 20151103
  6. PANTOPRAZOLE SODIUM. [Suspect]
     Active Substance: PANTOPRAZOLE SODIUM
     Dosage: 40 MILLIGRAM, ONCE A DAY
     Route: 042
     Dates: start: 20151101, end: 20151115
  7. ROVAMYCINE [Suspect]
     Active Substance: SPIRAMYCIN
     Indication: INFECTION
     Dosage: 3 DF, ONCE A DAY
     Route: 048
     Dates: start: 20151030, end: 20151104
  8. ORACILLINE [Suspect]
     Active Substance: PENICILLIN V
     Dosage: UNK
     Route: 048
     Dates: start: 20151120, end: 20151121
  9. SPECIAFOLDINE [Concomitant]
     Active Substance: FOLIC ACID
     Indication: PRODUCT USED FOR UNKNOWN INDICATION
     Dosage: UNK
     Route: 065
  10. SOLIRIS [Interacting]
     Active Substance: ECULIZUMAB
     Dosage: UNK
     Route: 042
     Dates: start: 20151015, end: 20151015
  11. ORACILLINE [Suspect]
     Active Substance: PENICILLIN V
     Indication: INFECTION
     Dosage: 2000000 IU, ONCE A DAY
     Route: 048
     Dates: start: 20151019, end: 20151105
  12. PANTOPRAZOLE [Suspect]
     Active Substance: PANTOPRAZOLE
     Indication: PRODUCT USED FOR UNKNOWN INDICATION
     Dosage: 40 MG, QD
     Route: 042
     Dates: start: 20151101, end: 20151115
  13. SOLIRIS [Interacting]
     Active Substance: ECULIZUMAB
     Dosage: 900 MILLIGRAM,1 WEEK
     Route: 042
     Dates: start: 20151015, end: 20151106
  14. ESIDREX [Suspect]
     Active Substance: HYDROCHLOROTHIAZIDE
     Dosage: UNK
     Route: 048
     Dates: start: 20151114, end: 20151116
  15. ORACILLINE [Suspect]
     Active Substance: PENICILLIN V
     Dosage: 2000000 IU, QD
     Route: 065
     Dates: start: 20151019, end: 20151105
  16. SOLIRIS [Interacting]
     Active Substance: ECULIZUMAB
     Dosage: UNK
     Route: 042
     Dates: start: 20151029, end: 20151029
  17. PANTOPRAZOLE SODIUM. [Suspect]
     Active Substance: PANTOPRAZOLE SODIUM
     Dosage: 40 MILLIGRAM, ONCE A DAY
     Route: 048
     Dates: start: 20151101, end: 20151115
  18. PANTOPRAZOLE SODIUM. [Suspect]
     Active Substance: PANTOPRAZOLE SODIUM
     Dosage: 120 UNK
     Route: 065
     Dates: start: 20151120
  19. ALPRAZOLAM. [Suspect]
     Active Substance: ALPRAZOLAM
     Indication: PRODUCT USED FOR UNKNOWN INDICATION
     Dosage: UNK, QD ()
     Route: 065
     Dates: start: 20151023, end: 20151105
  20. SOLIRIS [Interacting]
     Active Substance: ECULIZUMAB
     Dosage: UNK
     Route: 042
     Dates: start: 20151106
  21. PANTOPRAZOLE SODIUM. [Suspect]
     Active Substance: PANTOPRAZOLE SODIUM
     Indication: PRODUCT USED FOR UNKNOWN INDICATION
     Dosage: 120 MILLIGRAM
     Route: 065
     Dates: start: 20151123

REACTIONS (29)
  - Pyrexia [Recovered/Resolved]
  - Pancreatic disorder [Unknown]
  - Skin disorder [Recovering/Resolving]
  - Lung infection [Unknown]
  - Haemoptysis [Recovered/Resolved]
  - Inappropriate schedule of product administration [Unknown]
  - Device related infection [Unknown]
  - Oesophagitis [Unknown]
  - Hepatocellular injury [Recovering/Resolving]
  - Hepatocellular injury [Recovering/Resolving]
  - Eosinophilia [Recovering/Resolving]
  - Serum ferritin abnormal [Unknown]
  - Rash [Recovering/Resolving]
  - Acute kidney injury [Unknown]
  - Cell death [Recovering/Resolving]
  - Infection [Unknown]
  - Chest pain [Recovered/Resolved]
  - Burning sensation [Recovered/Resolved]
  - Drug eruption [Unknown]
  - Cough [Recovered/Resolved]
  - Lung disorder [Unknown]
  - Drug reaction with eosinophilia and systemic symptoms [Recovering/Resolving]
  - Cholestasis [Recovering/Resolving]
  - Dyspnoea [Unknown]
  - Skin burning sensation [Recovering/Resolving]
  - Petechiae [Recovering/Resolving]
  - Transaminases increased [Unknown]
  - Mitral valve incompetence [Unknown]
  - Tricuspid valve disease [Unknown]

NARRATIVE: CASE EVENT DATE: 20151015
